FAERS Safety Report 6614263-5 (Version None)
Quarter: 2010Q1

REPORT INFORMATION
  Report Type: 
  Country: None (occurrence: None)
  Receive Date: 20100304
  Receipt Date: 20100222
  Transmission Date: 20100710
  Serious: Yes (Hospitalization)
  Sender: FDA-Public Use
  Company Number: US-WYE-H13738310

PATIENT
  Age: 68 Year
  Sex: Female

DRUGS (5)
  1. PRISTIQ [Suspect]
     Indication: DEPRESSION
     Route: 048
     Dates: start: 20100212
  2. LIPITOR [Concomitant]
     Dosage: UNKNOWN
  3. ASPIRIN [Concomitant]
  4. LISINOPRIL [Concomitant]
     Indication: HYPERTENSION
     Dosage: UNKNOWN
  5. KLONOPIN [Concomitant]
     Dosage: UNKNOWN

REACTIONS (4)
  - HEART RATE ABNORMAL [None]
  - HEART RATE DECREASED [None]
  - INSOMNIA [None]
  - NERVOUSNESS [None]
